FAERS Safety Report 19482881 (Version 1)
Quarter: 2021Q3

REPORT INFORMATION
  Report Type: Spontaneous
  Country: US (occurrence: US)
  Receive Date: 20210701
  Receipt Date: 20210701
  Transmission Date: 20211014
  Serious: No
  Sender: FDA-Public Use
  Company Number: US-BAYER-2021-167122

PATIENT

DRUGS (1)
  1. CIPRO [Suspect]
     Active Substance: CIPROFLOXACIN HYDROCHLORIDE
     Indication: URINARY TRACT INFECTION
     Dosage: UNK

REACTIONS (5)
  - Pruritus [None]
  - Abdominal pain [None]
  - Blister [Not Recovered/Not Resolved]
  - Pallor [None]
  - Asthenia [None]

NARRATIVE: CASE EVENT DATE: 20210627
